FAERS Safety Report 5450221-4 (Version None)
Quarter: 2007Q3

REPORT INFORMATION
  Report Type: 
  Country: None (occurrence: None)
  Receive Date: 20070912
  Receipt Date: 20070906
  Transmission Date: 20080115
  Serious: Yes (Other)
  Sender: FDA-Public Use
  Company Number: GB-JNJFOC-20070802522

PATIENT
  Sex: Female

DRUGS (4)
  1. RISPERDAL [Suspect]
     Route: 048
  2. RISPERDAL [Suspect]
     Indication: DRUG USE FOR UNKNOWN INDICATION
     Route: 048
  3. FUROSEMIDE [Concomitant]
     Indication: DYSPNOEA
     Route: 065
     Dates: start: 20060309
  4. FUROSEMIDE [Concomitant]
     Indication: JOINT SWELLING
     Route: 065
     Dates: start: 20060309

REACTIONS (4)
  - ELECTROCARDIOGRAM T WAVE ABNORMAL [None]
  - GALACTORRHOEA [None]
  - ISCHAEMIA [None]
  - LEFT ATRIAL DILATATION [None]
